FAERS Safety Report 7565565-X (Version None)
Quarter: 2011Q2

REPORT INFORMATION
  Report Type: 
  Country: None (occurrence: None)
  Receive Date: 20110615
  Receipt Date: 20110602
  Transmission Date: 20111010
  Serious: Yes (Hospitalization)
  Sender: FDA-Public Use
  Company Number: AU-005506

PATIENT
  Sex: Male

DRUGS (9)
  1. NAPROSYN [Concomitant]
  2. NORVASC [Concomitant]
  3. MOTILIUM /00498201/ [Concomitant]
  4. DOLOXENE [Concomitant]
  5. MINIRIN [Suspect]
     Indication: NOCTURIA
     Dosage: (10 UG QD NASAL)
     Dates: start: 20110526, end: 20110604
  6. OXYCODONE HCL [Concomitant]
  7. LIPITOR [Concomitant]
  8. PLAVIX [Concomitant]
  9. FOLIC ACID [Concomitant]

REACTIONS (8)
  - NAUSEA [None]
  - OFF LABEL USE [None]
  - DRUG INTERACTION [None]
  - LETHARGY [None]
  - CONFUSIONAL STATE [None]
  - ASTHENIA [None]
  - MUSCULAR WEAKNESS [None]
  - HYPONATRAEMIA [None]
